FAERS Safety Report 21788070 (Version 1)
Quarter: 2022Q4

REPORT INFORMATION
  Report Type: Spontaneous
  Country: SE (occurrence: US)
  Receive Date: 20221228
  Receipt Date: 20221228
  Transmission Date: 20230113
  Serious: Yes (Hospitalization)
  Sender: FDA-Public Use
  Company Number: None

PATIENT
  Age: 20 Year
  Sex: Female

DRUGS (2)
  1. SERTRALINE [Suspect]
     Active Substance: SERTRALINE HYDROCHLORIDE
     Indication: Product used for unknown indication
     Dosage: DOSE OF 30 ST AT AN UNKNOWN FREQUENCY?STRENGTH: NOT REPORTED?EXPIRY DATE: NOT REPORTED
     Dates: start: 20221112, end: 20221112
  2. FLUOXETINE [Suspect]
     Active Substance: FLUOXETINE HYDROCHLORIDE
     Indication: Product used for unknown indication
     Dosage: DOSE OF 10 ST AT AN UNKNOWN FREQUENCY?STRENGTH: NOT REPORTED?EXPIRY DATE: NOT REPORTED
     Dates: start: 20221112, end: 20221112

REACTIONS (4)
  - Toxicity to various agents [Unknown]
  - Tachycardia [Recovered/Resolved]
  - Intentional overdose [Unknown]
  - Vomiting [Recovered/Resolved]

NARRATIVE: CASE EVENT DATE: 20221112
